FAERS Safety Report 9990609 (Version 1)
Quarter: 2014Q1

REPORT INFORMATION
  Report Type: Report from Study
  Country: US (occurrence: US)
  Receive Date: 20140310
  Receipt Date: 20140310
  Transmission Date: 20141002
  Serious: No
  Sender: FDA-Public Use
  Company Number: US-ABBVIE-13P-163-1134871-00

PATIENT
  Age: 59 Year
  Sex: Male

DRUGS (6)
  1. HUMIRA [Suspect]
     Indication: RHEUMATOID ARTHRITIS
     Dates: start: 20130510
  2. MULTIVITAMINS, HERBS AND NUTRIENTS [Concomitant]
     Indication: PRODUCT USED FOR UNKNOWN INDICATION
     Dosage: 8 CAPSULES DAILY
  3. GLUCOSAMINE AND OTHER HERBS [Concomitant]
     Indication: RHEUMATOID ARTHRITIS
     Dosage: 6 CAPSULES DAILY
  4. DIETARY CELENIUM [Concomitant]
     Indication: PROSTATOMEGALY
     Dosage: DAILY
  5. COLLAGEN [Concomitant]
     Indication: ROUTINE HEALTH MAINTENANCE
     Dosage: ^ON AND OFF^ IN THE MORNINGS
  6. CELEBREX [Concomitant]
     Indication: PRODUCT USED FOR UNKNOWN INDICATION

REACTIONS (5)
  - Movement disorder [Not Recovered/Not Resolved]
  - Epigastric discomfort [Not Recovered/Not Resolved]
  - Drug ineffective [Not Recovered/Not Resolved]
  - Pain in extremity [Not Recovered/Not Resolved]
  - Musculoskeletal pain [Not Recovered/Not Resolved]
